APPROVED DRUG PRODUCT: LEUCOVORIN CALCIUM
Active Ingredient: LEUCOVORIN CALCIUM
Strength: EQ 50MG BASE/VIAL
Dosage Form/Route: INJECTABLE;INJECTION
Application: A089384 | Product #001 | TE Code: AP
Applicant: HIKMA PHARMACEUTICALS USA INC
Approved: Sep 14, 1987 | RLD: No | RS: Yes | Type: RX